FAERS Safety Report 8983259 (Version 2)
Quarter: 2013Q1

REPORT INFORMATION
  Report Type: Spontaneous
  Country: TR (occurrence: TR)
  Receive Date: 20121224
  Receipt Date: 20130111
  Transmission Date: 20140127
  Serious: Yes (Hospitalization, Disabling)
  Sender: FDA-Public Use
  Company Number: PHHY2012TR115525

PATIENT
  Age: 44 Year
  Sex: Male

DRUGS (1)
  1. SANDOSTATIN LAR [Suspect]
     Indication: ACROMEGALY
     Dosage: 30 MG, ONCE EVERY 28 DAYS
     Route: 030

REACTIONS (2)
  - Hernia [Unknown]
  - Paraplegia [Unknown]
